FAERS Safety Report 15074703 (Version 1)
Quarter: 2018Q3

REPORT INFORMATION
  Report Type: Spontaneous
  Country: US (occurrence: US)
  Receive Date: 20180627
  Receipt Date: 20180627
  Transmission Date: 20181010
  Serious: Yes (Death)
  Sender: FDA-Public Use
  Company Number: US-SAOL THERAPEUTICS-2017SAO01193

PATIENT
  Sex: Female

DRUGS (4)
  1. BACLOFEN. [Suspect]
     Active Substance: BACLOFEN
     Indication: BRAIN INJURY
  2. BACLOFEN. [Suspect]
     Active Substance: BACLOFEN
     Indication: MUSCLE SPASTICITY
     Dosage: 500 ?G, \DAY
     Route: 037
  3. UNKNOWN ORAL CONTRACEPTIVE [Suspect]
     Active Substance: UNSPECIFIED INGREDIENT
  4. ZOLOFT [Concomitant]
     Active Substance: SERTRALINE HYDROCHLORIDE
     Indication: DEPRESSION

REACTIONS (2)
  - Unevaluable event [None]
  - Pulmonary embolism [Fatal]

NARRATIVE: CASE EVENT DATE: 2017
